FAERS Safety Report 12197732 (Version 1)
Quarter: 2016Q1

REPORT INFORMATION
  Report Type: Spontaneous
  Country: US (occurrence: US)
  Receive Date: 20160322
  Receipt Date: 20160322
  Transmission Date: 20160526
  Serious: Yes (Other)
  Sender: FDA-Public Use
  Company Number: US-BEH-2016060219

PATIENT
  Sex: Female
  Weight: 53 kg

DRUGS (17)
  1. VALIUM [Concomitant]
     Active Substance: DIAZEPAM
  2. ZYRTEC [Concomitant]
     Active Substance: CETIRIZINE HYDROCHLORIDE
  3. NATURE-THROID [Concomitant]
     Active Substance: THYROID, PORCINE
  4. WELLBUTRIN [Concomitant]
     Active Substance: BUPROPION HYDROCHLORIDE
  5. OTHER COMBINATIONS OF NUTRIENTS [Concomitant]
  6. HIZENTRA [Suspect]
     Active Substance: HUMAN IMMUNOGLOBULIN G
     Indication: IMMUNODEFICIENCY COMMON VARIABLE
     Route: 058
  7. VITAMIN D [Concomitant]
     Active Substance: CHOLECALCIFEROL
  8. PROBIOTIC [Concomitant]
     Active Substance: PROBIOTICS NOS
  9. BIOTIN [Concomitant]
     Active Substance: BIOTIN
  10. CALCIUM W/ MAGNESIUM [Concomitant]
  11. VALTREX [Concomitant]
     Active Substance: VALACYCLOVIR HYDROCHLORIDE
  12. BIOTIN [Concomitant]
     Active Substance: BIOTIN
  13. CLONAZEPAM. [Concomitant]
     Active Substance: CLONAZEPAM
  14. DHEA [Concomitant]
     Active Substance: PRASTERONE
  15. EVOXAC [Concomitant]
     Active Substance: CEVIMELINE HYDROCHLORIDE
  16. NATURAL ALLERGY SUPPLEMENT [Concomitant]
  17. CREON [Concomitant]
     Active Substance: PANCRELIPASE AMYLASE\PANCRELIPASE LIPASE\PANCRELIPASE PROTEASE

REACTIONS (2)
  - Upper respiratory tract infection [Unknown]
  - Foot operation [Unknown]
